FAERS Safety Report 5950516-1 (Version None)
Quarter: 2008Q4

REPORT INFORMATION
  Report Type: 
  Country: None (occurrence: None)
  Receive Date: 20081022
  Receipt Date: 20080709
  Transmission Date: 20090506
  Serious: No
  Sender: FDA-Public Use
  Company Number: SPV1-2008-01466

PATIENT
  Sex: Male

DRUGS (1)
  1. VYVANSE [Suspect]
     Dates: start: 20080630, end: 20080709

REACTIONS (1)
  - HALLUCINATION, AUDITORY [None]
